FAERS Safety Report 11444505 (Version 2)
Quarter: 2015Q3

REPORT INFORMATION
  Report Type: Spontaneous
  Country: US (occurrence: US)
  Receive Date: 20150902
  Receipt Date: 20150910
  Transmission Date: 20151125
  Serious: Yes (Hospitalization, Other)
  Sender: FDA-Public Use
  Company Number: US-ROCHE-1628609

PATIENT
  Sex: Male
  Weight: 100.79 kg

DRUGS (1)
  1. ESBRIET [Suspect]
     Active Substance: PIRFENIDONE
     Indication: IDIOPATHIC PULMONARY FIBROSIS
     Route: 048
     Dates: start: 20150811

REACTIONS (4)
  - Dehydration [Unknown]
  - Cerebrovascular accident [Unknown]
  - Dizziness [Unknown]
  - Blood pressure abnormal [Unknown]
